FAERS Safety Report 12836413 (Version 2)
Quarter: 2016Q4

REPORT INFORMATION
  Report Type: Report from Study
  Country: None (occurrence: CA)
  Receive Date: 20161011
  Receipt Date: 20161108
  Transmission Date: 20170207
  Serious: Yes (Hospitalization, Other)
  Sender: FDA-Public Use
  Company Number: CA-ABBVIE-16P-028-1749034-00

PATIENT
  Sex: Male

DRUGS (1)
  1. HUMIRA [Suspect]
     Active Substance: ADALIMUMAB
     Indication: CROHN^S DISEASE
     Route: 058
     Dates: start: 20160707, end: 201607

REACTIONS (4)
  - Gait disturbance [Not Recovered/Not Resolved]
  - Rash macular [Not Recovered/Not Resolved]
  - Sigmoidectomy [Unknown]
  - Gastrointestinal anastomotic leak [Unknown]

NARRATIVE: CASE EVENT DATE: 2016
